FAERS Safety Report 5743404-7 (Version None)
Quarter: 2008Q2

REPORT INFORMATION
  Report Type: 
  Country: None (occurrence: None)
  Receive Date: 20080516
  Receipt Date: 20080516
  Transmission Date: 20081010
  Serious: Yes (Hospitalization)
  Sender: FDA-Public Use
  Company Number: None

PATIENT
  Sex: Male
  Weight: 86.3 kg

DRUGS (1)
  1. CISPLATIN [Suspect]
     Dosage: 365 MG
     Dates: end: 20080402

REACTIONS (21)
  - ARTERIOSCLEROSIS CORONARY ARTERY [None]
  - BUNDLE BRANCH BLOCK LEFT [None]
  - BUNDLE BRANCH BLOCK RIGHT [None]
  - CARDIOMEGALY [None]
  - CATHETER SITE INFECTION [None]
  - DRUG DOSE OMISSION [None]
  - DYSURIA [None]
  - HEPATIC CIRRHOSIS [None]
  - HYPERHIDROSIS [None]
  - HYPONATRAEMIA [None]
  - LEFT VENTRICULAR DYSFUNCTION [None]
  - OEDEMA [None]
  - PLEURAL EFFUSION [None]
  - PSEUDOMONAS INFECTION [None]
  - PULMONARY OEDEMA [None]
  - RENAL IMPAIRMENT [None]
  - RIGHT VENTRICULAR DYSFUNCTION [None]
  - SINUS TACHYCARDIA [None]
  - SPUTUM CULTURE POSITIVE [None]
  - SUPRAVENTRICULAR EXTRASYSTOLES [None]
  - WEIGHT DECREASED [None]
